FAERS Safety Report 10372003 (Version 1)
Quarter: 2014Q3

REPORT INFORMATION
  Report Type: Report from Study
  Country: FR (occurrence: FR)
  Receive Date: 20140808
  Receipt Date: 20140808
  Transmission Date: 20150326
  Serious: Yes (Hospitalization)
  Sender: FDA-Public Use
  Company Number: PHHY2014FR097734

PATIENT
  Age: 71 Year
  Sex: Male

DRUGS (2)
  1. NEORAL [Suspect]
     Active Substance: CYCLOSPORINE
     Dosage: 160 MG, DAILY
     Route: 048
     Dates: start: 20100717
  2. CELLCEPT [Suspect]
     Active Substance: MYCOPHENOLATE MOFETIL\MYCOPHENOLATE MOFETIL HYDROCHLORIDE
     Dosage: 2000 MG,DAILY
     Route: 048
     Dates: start: 20100717

REACTIONS (2)
  - Cardiac failure [Recovered/Resolved]
  - Aortic occlusion [Recovered/Resolved]

NARRATIVE: CASE EVENT DATE: 20140419
